FAERS Safety Report 9143481 (Version 1)
Quarter: 2013Q1

REPORT INFORMATION
  Report Type: Report from Study
  Country: US (occurrence: US)
  Receive Date: 20130306
  Receipt Date: 20130306
  Transmission Date: 20140127
  Serious: Yes (Other)
  Sender: FDA-Public Use
  Company Number: PHHO2013US003397

PATIENT
  Sex: Female
  Weight: 70.5 kg

DRUGS (9)
  1. GILENYA [Suspect]
     Indication: RELAPSING-REMITTING MULTIPLE SCLEROSIS
     Dosage: 0.5 MG, QD
     Route: 048
     Dates: start: 20120917, end: 20130304
  2. CITALOPRAM [Concomitant]
     Indication: DEPRESSION
     Dosage: 40 MG, QD
     Dates: start: 200412
  3. GABAPENTIN [Concomitant]
     Indication: RESTLESS LEGS SYNDROME
     Dosage: 300 MG, QD
     Dates: start: 200412
  4. LEXAPRO [Concomitant]
     Dosage: 10 MG, UNK
  5. OMEPRAZOLE [Concomitant]
     Indication: GASTROOESOPHAGEAL REFLUX DISEASE
     Dosage: 20 MG, PRN
  6. MULTI-VIT [Concomitant]
     Indication: SUPPLEMENTATION THERAPY
     Dosage: 1000 U, UNK
     Dates: start: 201006
  7. CITRACAL [Concomitant]
     Indication: SUPPLEMENTATION THERAPY
     Dosage: 600 MG, BID
     Dates: start: 201006
  8. IBUPROFEN [Concomitant]
     Indication: PROPHYLAXIS
     Dosage: 500 MG, PRN
     Dates: start: 200708
  9. CLOBETASOL PROPIONATE [Concomitant]
     Indication: LICHEN PLANUS
     Dosage: 5 UNK, UNK
     Dates: start: 200406

REACTIONS (1)
  - Malignant melanoma [Not Recovered/Not Resolved]
